FAERS Safety Report 13969381 (Version 2)
Quarter: 2017Q3

REPORT INFORMATION
  Report Type: Report from Study
  Country: US (occurrence: US)
  Receive Date: 20170914
  Receipt Date: 20170927
  Transmission Date: 20171128
  Serious: Yes (Death, Other)
  Sender: FDA-Public Use
  Company Number: US-GILEAD-2017-0293282

PATIENT
  Age: 89 Year
  Sex: Male

DRUGS (1)
  1. AMBRISENTAN [Suspect]
     Active Substance: AMBRISENTAN
     Indication: PULMONARY HYPERTENSION
     Dosage: 5 MG, QD
     Route: 065
     Dates: start: 20120926

REACTIONS (1)
  - Death [Fatal]

NARRATIVE: CASE EVENT DATE: 20170816
